FAERS Safety Report 19120006 (Version 1)
Quarter: 2021Q2

REPORT INFORMATION
  Report Type: Report from Study
  Country: US (occurrence: US)
  Receive Date: 20210412
  Receipt Date: 20210412
  Transmission Date: 20210717
  Serious: No
  Sender: FDA-Public Use
  Company Number: US-ACADIA PHARMACEUTICALS INC.-ACA-2021-PIM-001073

PATIENT
  Age: 92 Year
  Sex: Male

DRUGS (1)
  1. NUPLAZID [Suspect]
     Active Substance: PIMAVANSERIN TARTRATE
     Indication: PSYCHOTIC DISORDER
     Dosage: 10 MILLIGRAM, BID
     Route: 048
     Dates: start: 202010

REACTIONS (3)
  - Fatigue [Unknown]
  - Underdose [Unknown]
  - Restlessness [Unknown]

NARRATIVE: CASE EVENT DATE: 202010
